FAERS Safety Report 8916165 (Version 1)
Quarter: 2012Q4

REPORT INFORMATION
  Report Type: 
  Country: US (occurrence: US)
  Receive Date: 20121120
  Receipt Date: 20121120
  Transmission Date: 20130627
  Serious: Yes (Death, Hospitalization)
  Sender: FDA-Public Use
  Company Number: US-GLAXOSMITHKLINE-A1001329A

PATIENT
  Age: 71 Year
  Sex: Male

DRUGS (2)
  1. ARIXTRA [Suspect]
     Indication: BLADDER CANCER
     Dosage: 7.5MG Per day
     Route: 058
     Dates: start: 2012
  2. OTHER MEDICATIONS [Concomitant]

REACTIONS (4)
  - Death [Fatal]
  - Oedema peripheral [Unknown]
  - Abdominal distension [Unknown]
  - Lung disorder [Unknown]
